FAERS Safety Report 5510445-4 (Version None)
Quarter: 2007Q4

REPORT INFORMATION
  Report Type: 
  Country: None (occurrence: None)
  Receive Date: 20071108
  Receipt Date: 20071105
  Transmission Date: 20080405
  Serious: Yes (Other)
  Sender: FDA-Public Use
  Company Number: US-ELI_LILLY_AND_COMPANY-US200710002532

PATIENT
  Sex: Female

DRUGS (13)
  1. CYMBALTA [Suspect]
     Indication: PAIN
     Dosage: 1 D/F, UNK
     Dates: end: 20060101
  2. CYMBALTA [Suspect]
     Dosage: 60 MG, EACH EVENING
     Dates: start: 20070601
  3. CYMBALTA [Suspect]
     Dosage: 30 MG, EACH MORNING
     Dates: start: 20070101
  4. CYMBALTA [Suspect]
     Dosage: 30 MG, EACH MORNING
     Dates: start: 20070101, end: 20070908
  5. CYMBALTA [Suspect]
     Dosage: 60 MG, EACH EVENING
     Dates: start: 20070101, end: 20070908
  6. CYMBALTA [Suspect]
     Dosage: 1 D/F, UNK
     Dates: start: 20070901, end: 20070901
  7. PLAVIX [Concomitant]
     Dosage: 75 MG, UNK
  8. SIMVASTATIN [Concomitant]
     Dosage: 10 MG, UNK
  9. ATENOLOL [Concomitant]
     Indication: BLOOD PRESSURE
     Dosage: 25 MG, UNK
  10. ALPRAZOLAM [Concomitant]
     Indication: INSOMNIA
     Dosage: 2 MG, UNK
     Dates: end: 20070901
  11. ALPRAZOLAM [Concomitant]
     Dosage: 1 MG, EACH EVENING
     Dates: start: 20070901
  12. OXYCODONE HCL [Concomitant]
     Dosage: 120 MG, UNK
     Dates: end: 20070901
  13. OXYCODONE HCL [Concomitant]
     Dosage: 90 MG, UNK
     Dates: start: 20070901

REACTIONS (13)
  - ACTIVITIES OF DAILY LIVING IMPAIRED [None]
  - DISORIENTATION [None]
  - DIZZINESS [None]
  - DYSPNOEA [None]
  - EAR DISORDER [None]
  - FEELING ABNORMAL [None]
  - LOSS OF CONSCIOUSNESS [None]
  - PAINFUL RESPIRATION [None]
  - ROAD TRAFFIC ACCIDENT [None]
  - SLEEP DISORDER [None]
  - SOMNOLENCE [None]
  - STERNAL FRACTURE [None]
  - VERTIGO [None]
